FAERS Safety Report 9565454 (Version 4)
Quarter: 2013Q4

REPORT INFORMATION
  Report Type: Report from Study
  Country: CA (occurrence: CA)
  Receive Date: 20130930
  Receipt Date: 20131226
  Transmission Date: 20140711
  Serious: Yes (Hospitalization, Other)
  Sender: FDA-Public Use
  Company Number: CA-JNJFOC-20130802077

PATIENT
  Sex: Male
  Weight: 96.1 kg

DRUGS (19)
  1. REMICADE [Suspect]
     Indication: CROHN^S DISEASE
     Route: 042
     Dates: start: 20131105
  2. REMICADE [Suspect]
     Indication: CROHN^S DISEASE
     Route: 042
     Dates: start: 20130603
  3. REMICADE [Suspect]
     Indication: CROHN^S DISEASE
     Route: 042
     Dates: start: 201212
  4. IMURAN [Concomitant]
     Route: 065
  5. DIDROCAL [Concomitant]
     Route: 065
  6. CIPRO [Concomitant]
     Route: 065
  7. FOLIC ACID [Concomitant]
     Route: 065
  8. ANDROGEL [Concomitant]
     Route: 065
  9. K DUR [Concomitant]
     Route: 065
  10. NOVO-DILTAZEM [Concomitant]
     Route: 065
  11. METOPROLOL [Concomitant]
     Route: 065
  12. ELAVIL [Concomitant]
     Route: 065
  13. ZOPICLONE [Concomitant]
     Route: 065
  14. LANZOPRAZOLE [Concomitant]
     Route: 065
  15. NORVASC [Concomitant]
     Route: 065
  16. CLOPIDOGREL [Concomitant]
     Route: 065
  17. LOPERAMIDE [Concomitant]
     Route: 065
  18. RANITIDINE [Concomitant]
     Route: 065
  19. CITALOPRAM [Concomitant]
     Route: 065

REACTIONS (3)
  - Intestinal obstruction [Recovering/Resolving]
  - Fistula [Unknown]
  - Hernia [Unknown]
